FAERS Safety Report 9821553 (Version 2)
Quarter: 2014Q1

REPORT INFORMATION
  Report Type: Spontaneous
  Country: US (occurrence: US)
  Receive Date: 20140116
  Receipt Date: 20140304
  Transmission Date: 20141002
  Serious: Yes (Hospitalization)
  Sender: FDA-Public Use
  Company Number: US-PFIZER INC-2014011357

PATIENT
  Age: 90 Year
  Sex: Female
  Weight: 52.15 kg

DRUGS (5)
  1. REVATIO [Suspect]
     Indication: PULMONARY HYPERTENSION
     Dosage: 40 MG IN MORNING (TWO TABLETS OF 20MG EACH), 20MG IN AFTERNOON AND 20MG AT NIGHT
     Route: 048
  2. GLIPIZIDE [Concomitant]
     Indication: TYPE 2 DIABETES MELLITUS
     Dosage: UNK
  3. AMLODIPINE [Concomitant]
     Indication: HYPERTENSION
     Dosage: 10 MG, DAILY
  4. DIOVAN [Concomitant]
     Indication: HYPERTENSION
     Dosage: 320 MG, DAILY
  5. METOPROLOL [Concomitant]
     Dosage: 100 MG, DAILY

REACTIONS (2)
  - Dyspnoea [Unknown]
  - Oedema peripheral [Recovering/Resolving]
